FAERS Safety Report 6393349-7 (Version None)
Quarter: 2009Q4

REPORT INFORMATION
  Report Type: 
  Country: None (occurrence: None)
  Receive Date: 20091008
  Receipt Date: 20090930
  Transmission Date: 20100525
  Serious: No
  Sender: FDA-Public Use
  Company Number: US-JNJFOC-20091001036

PATIENT
  Sex: Female
  Weight: 78.02 kg

DRUGS (8)
  1. DURAGESIC-100 [Suspect]
     Indication: CANCER PAIN
     Route: 062
  2. SOMA [Concomitant]
     Route: 048
  3. AMITRIPTYLINE [Concomitant]
     Route: 048
  4. CLONAZEPAM [Concomitant]
     Route: 048
  5. LEXAPRO [Concomitant]
     Route: 048
  6. EFFEXOR [Concomitant]
     Route: 065
  7. COMPAZINE [Concomitant]
     Route: 048
  8. LASIX [Concomitant]
     Route: 048

REACTIONS (4)
  - DRUG DOSE OMISSION [None]
  - PAIN [None]
  - PRODUCT ADHESION ISSUE [None]
  - WRONG TECHNIQUE IN DRUG USAGE PROCESS [None]
